FAERS Safety Report 9133084 (Version 1)
Quarter: 2013Q1

REPORT INFORMATION
  Report Type: Spontaneous
  Country: CN (occurrence: CN)
  Receive Date: 20130116
  Receipt Date: 20130116
  Transmission Date: 20140127
  Serious: Yes (Other)
  Sender: FDA-Public Use
  Company Number: PHHY2012CN123904

PATIENT
  Age: 76 Year
  Sex: Male
  Weight: 55 kg

DRUGS (2)
  1. DIOVAN [Suspect]
     Indication: HYPERTENSION
     Dosage: 1 DF, ONCE/SINGLE
     Route: 048
     Dates: start: 20100827, end: 20100828
  2. LACIPIL [Suspect]
     Indication: HYPERTENSION

REACTIONS (3)
  - Asthma [Recovering/Resolving]
  - Dyspnoea [Recovering/Resolving]
  - Hypoventilation [Recovering/Resolving]
